FAERS Safety Report 4301295-5 (Version None)
Quarter: 2004Q1

REPORT INFORMATION
  Report Type: 
  Country: None (occurrence: None)
  Receive Date: 20040219
  Receipt Date: 20040210
  Transmission Date: 20041129
  Serious: Yes (Other)
  Sender: FDA-Public Use
  Company Number: 2004-02-0097

PATIENT
  Sex: Male

DRUGS (8)
  1. PEG-INTRON [Suspect]
     Indication: HEPATITIS C
     Dosage: SEE IMAGE
     Dates: start: 20020828, end: 20030626
  2. PEG-INTRON [Suspect]
     Indication: HEPATITIS C
     Dosage: SEE IMAGE
     Dates: start: 20020828, end: 20030726
  3. PEG-INTRON [Suspect]
     Indication: HEPATITIS C
     Dosage: SEE IMAGE
     Dates: start: 20030626, end: 20030726
  4. RIBAVIRIN CAPSULES -GMP [Suspect]
     Indication: HEPATITIS C
     Dosage: 1200 MG
     Dates: start: 20020828, end: 20030726
  5. SELENIUM TRACE METAL ADDITIVE [Concomitant]
  6. NAPROXEN [Concomitant]
  7. ACETAMINOPHEN [Concomitant]
  8. HYDROXYZINE [Concomitant]

REACTIONS (4)
  - ANTI-THYROID ANTIBODY POSITIVE [None]
  - BLOOD THYROID STIMULATING HORMONE INCREASED [None]
  - ERECTILE DYSFUNCTION [None]
  - THYROID DISORDER [None]
